FAERS Safety Report 5052454-8 (Version None)
Quarter: 2006Q3

REPORT INFORMATION
  Report Type: 
  Country: None (occurrence: None)
  Receive Date: 20060717
  Receipt Date: 20060307
  Transmission Date: 20061208
  Serious: No
  Sender: FDA-Public Use
  Company Number: US-BRISTOL-MYERS SQUIBB COMPANY-13305941

PATIENT
  Sex: Female

DRUGS (1)
  1. ESTRACE [Suspect]

REACTIONS (3)
  - DISTURBANCE IN ATTENTION [None]
  - HOT FLUSH [None]
  - MIGRAINE [None]
